FAERS Safety Report 7613997-3 (Version None)
Quarter: 2011Q3

REPORT INFORMATION
  Report Type: 
  Country: None (occurrence: None)
  Receive Date: 20110708
  Receipt Date: 20110630
  Transmission Date: 20111222
  Serious: Yes (Other)
  Sender: FDA-Public Use
  Company Number: 2010SP032653

PATIENT
  Age: 32 Year
  Sex: Female

DRUGS (3)
  1. ORGALUTRAN (GANIRELIX /01453701/) [Suspect]
     Indication: IN VITRO FERTILISATION
     Dosage: QD;SC
     Route: 058
     Dates: start: 20100530, end: 20100610
  2. GONAL-F [Concomitant]
  3. GONAL-F [Concomitant]

REACTIONS (11)
  - DIZZINESS [None]
  - FATIGUE [None]
  - DECREASED APPETITE [None]
  - STRESS [None]
  - NAUSEA [None]
  - VOMITING [None]
  - CHEST PAIN [None]
  - OVARIAN ENLARGEMENT [None]
  - PRODUCT QUALITY ISSUE [None]
  - DYSPNOEA [None]
  - GASTRIC ULCER [None]
